FAERS Safety Report 12143346 (Version 2)
Quarter: 2016Q2

REPORT INFORMATION
  Report Type: Spontaneous
  Country: JP (occurrence: JP)
  Receive Date: 20160304
  Receipt Date: 20160411
  Transmission Date: 20160815
  Serious: Yes (Other)
  Sender: FDA-Public Use
  Company Number: JP-ROCHE-1720801

PATIENT
  Age: 6 Decade
  Sex: Female

DRUGS (1)
  1. AVASTIN [Suspect]
     Active Substance: BEVACIZUMAB
     Indication: BRAIN NEOPLASM
     Dosage: DOSAGE IS UNCERTAIN.?LAST DOSE ON 25/FEB/2016.
     Route: 041
     Dates: start: 20160225

REACTIONS (2)
  - Femoral neck fracture [Unknown]
  - Fall [Unknown]
